FAERS Safety Report 26046399 (Version 1)
Quarter: 2025Q4

REPORT INFORMATION
  Report Type: Spontaneous
  Country: US (occurrence: None)
  Receive Date: 20251114
  Receipt Date: 20251114
  Transmission Date: 20260118
  Serious: Yes (Hospitalization)
  Sender: FDA-CTU
  Company Number: None

PATIENT
  Age: 81 Year
  Sex: Female

DRUGS (1)
  1. IBRANCE [Suspect]
     Active Substance: PALBOCICLIB
     Dosage: OTHER FREQUENCY : QD FOR 21 DAYS ON AND THEN 7 DAYS OFF ;?
     Route: 048

REACTIONS (3)
  - Chronic obstructive pulmonary disease [None]
  - Urinary tract infection [None]
  - Bone cancer [None]
